FAERS Safety Report 6329208-5 (Version None)
Quarter: 2009Q3

REPORT INFORMATION
  Report Type: 
  Country: None (occurrence: None)
  Receive Date: 20090826
  Receipt Date: 20090814
  Transmission Date: 20100115
  Serious: Yes (Life-Threatening)
  Sender: FDA-Public Use
  Company Number: DE-PFIZER INC-2009254823

PATIENT
  Age: 72 Year

DRUGS (6)
  1. SUTENT [Suspect]
     Indication: METASTATIC RENAL CELL CARCINOMA
     Dosage: 50 MG, 1X/DAY
     Route: 048
     Dates: start: 20090731
  2. FENTANYL [Concomitant]
     Dosage: 50 UG, EVERY THIRD DAY
     Route: 062
  3. MACROGOL [Concomitant]
     Dosage: UNK
  4. METOCLOPRAMIDE HYDROCHLORIDE [Concomitant]
     Indication: NAUSEA
     Dosage: 20 DF, 3X/DAY
     Route: 048
     Dates: start: 20090801
  5. PREGABALIN [Concomitant]
     Indication: PAIN MANAGEMENT
     Dosage: 450 MG, 1X/DAY
     Route: 048
     Dates: start: 20090802
  6. TAMOXIFEN [Concomitant]
     Indication: BREAST CANCER
     Dosage: 20 MG, 1X/DAY
     Route: 048
     Dates: start: 20090801

REACTIONS (3)
  - ADRENAL INSUFFICIENCY [None]
  - HAEMORRHAGIC ANAEMIA [None]
  - OESOPHAGEAL ULCER [None]
